FAERS Safety Report 8627385 (Version 2)
Quarter: 2012Q4

REPORT INFORMATION
  Report Type: 
  Country: US (occurrence: US)
  Receive Date: 20120621
  Receipt Date: 20120904
  Transmission Date: 20130627
  Serious: Yes (Other)
  Sender: FDA-Public Use
  Company Number: US-BAYER-2012-060396

PATIENT
  Age: 28 Year
  Sex: Female
  Weight: 100.23 kg

DRUGS (3)
  1. MIRENA [Suspect]
     Indication: CONTRACEPTION
     Dosage: 20 mcg/24hr, CONT
     Route: 015
     Dates: start: 20120518, end: 20120611
  2. ZOLOFT [Concomitant]
     Dosage: 50 mg, UNK
  3. SYNTHROID [Concomitant]
     Dosage: 100 UNK, UNK

REACTIONS (3)
  - Genital haemorrhage [Recovering/Resolving]
  - Abdominal pain [Recovering/Resolving]
  - Device expulsion [None]
